FAERS Safety Report 13151824 (Version 2)
Quarter: 2017Q3

REPORT INFORMATION
  Report Type: Spontaneous
  Country: IT (occurrence: IT)
  Receive Date: 20170125
  Receipt Date: 20170808
  Transmission Date: 20171127
  Serious: Yes (Death, Hospitalization, Other)
  Sender: FDA-Public Use
  Company Number: IT-BRISTOL-MYERS SQUIBB COMPANY-BMS-2017-004591

PATIENT
  Age: 95 Year
  Sex: Male

DRUGS (2)
  1. APIXABAN [Suspect]
     Active Substance: APIXABAN
     Indication: PRODUCT USED FOR UNKNOWN INDICATION
     Dosage: 5 MG, DAILY
     Route: 048
     Dates: start: 20140101, end: 20170117
  2. TRIATEC                            /00116401/ [Concomitant]
     Active Substance: ACETAMINOPHEN\CODEINE PHOSPHATE
     Indication: HYPERTENSION
     Dosage: 2.5 MG, UNK
     Route: 065

REACTIONS (2)
  - Cerebral haemorrhage [Fatal]
  - Hypertensive crisis [Fatal]

NARRATIVE: CASE EVENT DATE: 20170117
